FAERS Safety Report 5212075-0 (Version None)
Quarter: 2007Q1

REPORT INFORMATION
  Report Type: 
  Country: None (occurrence: None)
  Receive Date: 20070118
  Receipt Date: 20070112
  Transmission Date: 20070707
  Serious: Yes (Hospitalization)
  Sender: FDA-Public Use
  Company Number: US-ELI_LILLY_AND_COMPANY-US200701002781

PATIENT
  Age: 60 Year
  Sex: Male

DRUGS (6)
  1. HUMALOG [Suspect]
     Indication: DIABETES MELLITUS INSULIN-DEPENDENT
     Dosage: 15 U, 2/D
     Dates: start: 20040101
  2. HUMALOG [Suspect]
     Dosage: 30 U, 2/D
     Dates: start: 20040101
  3. LIDOCAINE [Concomitant]
     Indication: PAIN
     Dosage: UNK UNK, AS NEEDED
     Dates: start: 20030101
  4. MORPHINE [Concomitant]
     Indication: PAIN
     Dosage: UNK UNK, AS NEEDED
     Dates: start: 20030101
  5. HUMALOG [Suspect]
     Dosage: 15 U, 2/D
     Dates: start: 20040101
  6. HUMALOG [Suspect]
     Dosage: 30 U, 2/D
     Dates: start: 20040101

REACTIONS (5)
  - BLOOD GLUCOSE INCREASED [None]
  - CARDIAC DISORDER [None]
  - DRUG INEFFECTIVE [None]
  - FEELING ABNORMAL [None]
  - PALPITATIONS [None]
